FAERS Safety Report 12159560 (Version 1)
Quarter: 2016Q1

REPORT INFORMATION
  Report Type: Spontaneous
  Country: GB (occurrence: GB)
  Receive Date: 20160308
  Receipt Date: 20160308
  Transmission Date: 20160526
  Serious: Yes (Hospitalization)
  Sender: FDA-Public Use
  Company Number: GB-TEVA-640032ACC

PATIENT
  Age: 91 Year
  Sex: Female

DRUGS (9)
  1. DULOXETINE. [Suspect]
     Active Substance: DULOXETINE
     Indication: DEPRESSED MOOD
     Dosage: 80 MILLIGRAM DAILY;
     Route: 048
     Dates: start: 20151124, end: 20160205
  2. BACLOFEN. [Concomitant]
     Active Substance: BACLOFEN
     Dates: start: 20151124
  3. CYCLIZINE [Concomitant]
     Active Substance: CYCLIZINE
     Dates: start: 20151124
  4. PARACETAMOL [Concomitant]
     Active Substance: ACETAMINOPHEN
     Dates: start: 20151124
  5. ALFACALCIDOL [Concomitant]
     Active Substance: ALFACALCIDOL
     Dates: start: 20070707
  6. LEVOTHYROXINE. [Concomitant]
     Active Substance: LEVOTHYROXINE
     Dates: start: 20080124
  7. DULOXETINE. [Suspect]
     Active Substance: DULOXETINE
     Indication: DEPRESSED MOOD
     Dosage: 120 MILLIGRAM DAILY;
     Route: 048
     Dates: start: 20160206, end: 20160218
  8. GAVISCON ADVANCE [Concomitant]
     Active Substance: POTASSIUM BICARBONATE\SODIUM ALGINATE
     Dates: start: 19990603
  9. OMEPRAZOLE. [Concomitant]
     Active Substance: OMEPRAZOLE
     Dates: start: 20160205

REACTIONS (4)
  - Joint stiffness [Recovering/Resolving]
  - Protrusion tongue [Recovering/Resolving]
  - Oral pain [Not Recovered/Not Resolved]
  - Extrapyramidal disorder [Recovering/Resolving]

NARRATIVE: CASE EVENT DATE: 20160218
